FAERS Safety Report 22837779 (Version 3)
Quarter: 2025Q1

REPORT INFORMATION
  Report Type: Report from Study
  Country: US (occurrence: US)
  Receive Date: 20230818
  Receipt Date: 20250228
  Transmission Date: 20250409
  Serious: No
  Sender: NOVARTIS
  Company Number: US-002147023-NVSC2023US178426

PATIENT
  Age: 67 Year
  Sex: Female

DRUGS (2)
  1. KESIMPTA [Suspect]
     Active Substance: OFATUMUMAB
     Indication: Product used for unknown indication
     Dosage: 20 MG, QMO
     Route: 058
  2. KESIMPTA [Suspect]
     Active Substance: OFATUMUMAB
     Route: 065
     Dates: start: 20230718

REACTIONS (2)
  - Rash [Unknown]
  - Pain [Unknown]

NARRATIVE: CASE EVENT DATE: 20230719
